FAERS Safety Report 6084305-7 (Version None)
Quarter: 2009Q1

REPORT INFORMATION
  Report Type: 
  Country: None (occurrence: None)
  Receive Date: 20090219
  Receipt Date: 20090209
  Transmission Date: 20090719
  Serious: Yes (Death, Life-Threatening, Other)
  Sender: FDA-Public Use
  Company Number: JP-WYE-H07601509

PATIENT
  Sex: Female
  Weight: 50 kg

DRUGS (3)
  1. ZOSYN [Suspect]
     Indication: PYELONEPHRITIS
     Route: 041
     Dates: start: 20081022, end: 20081024
  2. ZOSYN [Suspect]
     Dates: start: 20081025, end: 20081025
  3. PN TWIN [Concomitant]
     Indication: NUTRITIONAL SUPPORT
     Route: 041
     Dates: start: 20081007, end: 20081109

REACTIONS (5)
  - DISSEMINATED INTRAVASCULAR COAGULATION [None]
  - HEPATIC FAILURE [None]
  - PANCYTOPENIA [None]
  - PNEUMONIA [None]
  - RESPIRATORY FAILURE [None]
